FAERS Safety Report 7243506-2 (Version None)
Quarter: 2011Q1

REPORT INFORMATION
  Report Type: 
  Country: None (occurrence: None)
  Receive Date: 20110125
  Receipt Date: 20110114
  Transmission Date: 20110831
  Serious: Yes (Death)
  Sender: FDA-Public Use
  Company Number: CO-JNJFOC-20110104494

PATIENT
  Age: 37 Year
  Sex: Male

DRUGS (11)
  1. TRIMETOPRIM / SULFAMETOXAZOLE [Concomitant]
     Route: 065
  2. NORADRENALINE [Concomitant]
     Route: 065
  3. AMIKACIN [Concomitant]
     Route: 065
  4. INSULIN [Concomitant]
     Route: 065
  5. METOCLOPRAMIDE [Concomitant]
     Route: 065
  6. DORIBAX [Suspect]
     Indication: PANCREATITIS ACUTE
     Route: 041
  7. FENTANYL CITRATE [Concomitant]
     Route: 065
  8. DORIBAX [Suspect]
     Indication: BACTERAEMIA
     Route: 041
  9. DORIBAX [Suspect]
     Indication: PERITONITIS
     Route: 041
  10. OMEPRAZOLE [Concomitant]
     Route: 065
  11. FLUCONAZOLE [Concomitant]
     Route: 065

REACTIONS (4)
  - ARTERIAL RUPTURE [None]
  - RENAL FAILURE [None]
  - HYPOVOLAEMIC SHOCK [None]
  - COLONIC FISTULA [None]
